FAERS Safety Report 7418237-6 (Version None)
Quarter: 2011Q2

REPORT INFORMATION
  Report Type: 
  Country: None (occurrence: None)
  Receive Date: 20110408
  Receipt Date: 20110328
  Transmission Date: 20111010
  Serious: Yes (Hospitalization)
  Sender: FDA-Public Use
  Company Number: ACO_22715_2011

PATIENT
  Age: 64 Year
  Sex: Female

DRUGS (5)
  1. AMPYRA [Suspect]
     Indication: MULTIPLE SCLEROSIS
     Dosage: 10 MG
     Dates: start: 20101101, end: 20101201
  2. ZANAFLEX [Suspect]
     Indication: MULTIPLE SCLEROSIS
     Dosage: DOSE REDUCED
     Dates: end: 20101201
  3. ZANAFLEX [Suspect]
     Indication: MULTIPLE SCLEROSIS
     Dosage: DOSE REDUCED
     Dates: start: 20101201
  4. VICODIN [Concomitant]
  5. BACLOFEN [Concomitant]

REACTIONS (2)
  - BLOOD PRESSURE DECREASED [None]
  - CYSTITIS [None]
